FAERS Safety Report 16366036 (Version 1)
Quarter: 2019Q2

REPORT INFORMATION
  Report Type: Spontaneous
  Country: US (occurrence: US)
  Receive Date: 20190529
  Receipt Date: 20190529
  Transmission Date: 20190711
  Serious: Yes (Hospitalization)
  Sender: FDA-Public Use
  Company Number: US-SA-2019SA143190

PATIENT
  Age: 35 Year
  Sex: Female

DRUGS (2)
  1. SOLIQUA 100/33 [Suspect]
     Active Substance: INSULIN GLARGINE\LIXISENATIDE
     Indication: DIABETES MELLITUS INADEQUATE CONTROL
     Dosage: 15 U, QD
     Route: 058
     Dates: start: 20190201, end: 20190430
  2. SOLIQUA 100/33 [Suspect]
     Active Substance: INSULIN GLARGINE\LIXISENATIDE
     Indication: GLYCOSYLATED HAEMOGLOBIN

REACTIONS (2)
  - Hypoglycaemic unconsciousness [Recovered/Resolved]
  - Hypoglycaemia [Recovered/Resolved]
